FAERS Safety Report 9528221 (Version 2)
Quarter: 2013Q3

REPORT INFORMATION
  Report Type: Spontaneous
  Country: DE (occurrence: DE)
  Receive Date: 20130917
  Receipt Date: 20130919
  Transmission Date: 20140515
  Serious: Yes (Other)
  Sender: FDA-Public Use
  Company Number: PHHY2013DE101397

PATIENT
  Sex: Male

DRUGS (1)
  1. GILENYA [Suspect]
     Dosage: 0.5 MG, QD
     Route: 048
     Dates: start: 20120925, end: 20130913

REACTIONS (3)
  - Retinal haemorrhage [Not Recovered/Not Resolved]
  - Macular pigmentation [Not Recovered/Not Resolved]
  - Cystoid macular oedema [Not Recovered/Not Resolved]
